FAERS Safety Report 7969027-7 (Version None)
Quarter: 2011Q4

REPORT INFORMATION
  Report Type: 
  Country: None (occurrence: None)
  Receive Date: 20111209
  Receipt Date: 20111206
  Transmission Date: 20120403
  Serious: No
  Sender: FDA-Public Use
  Company Number: US-BAYER-2011-118199

PATIENT
  Sex: Female

DRUGS (4)
  1. IBUPROFEN (ADVIL) [Concomitant]
  2. ALEVE (CAPLET) [Suspect]
     Dosage: UNK
     Dates: start: 20110101
  3. ACETAMINOPHEN [Concomitant]
     Dosage: UNK
  4. NYQUIL [Concomitant]

REACTIONS (1)
  - OROPHARYNGEAL PAIN [None]
